FAERS Safety Report 14573038 (Version 1)
Quarter: 2018Q1

REPORT INFORMATION
  Report Type: Spontaneous
  Country: US (occurrence: US)
  Receive Date: 20180226
  Receipt Date: 20180226
  Transmission Date: 20180509
  Serious: No
  Sender: FDA-Public Use
  Company Number: US-JEROME STEVENS PHARMACEUTICALS, INC.-2042568

PATIENT
  Sex: Male
  Weight: 9.55 kg

DRUGS (1)
  1. UNITHROID [Suspect]
     Active Substance: LEVOTHYROXINE SODIUM

REACTIONS (4)
  - Dermatitis diaper [None]
  - Exposure via breast milk [None]
  - Eczema [None]
  - Abdominal discomfort [None]
